FAERS Safety Report 4427931-0 (Version None)
Quarter: 2004Q3

REPORT INFORMATION
  Report Type: 
  Country: None (occurrence: None)
  Receive Date: 20040813
  Receipt Date: 20040804
  Transmission Date: 20050211
  Serious: Yes (Other)
  Sender: FDA-Public Use
  Company Number: 2004227134US

PATIENT
  Age: 61 Year
  Sex: Female

DRUGS (4)
  1. PROVERA [Suspect]
     Dates: start: 19910101, end: 19960101
  2. MEDROXYPOGESTERONE ACETATE (MEDROXYPROGESTERONE ACETATE) [Suspect]
     Dates: start: 19960101, end: 19980404
  3. PREMARIN [Suspect]
     Dates: start: 19910101, end: 19960101
  4. PREMPRO [Suspect]
     Dates: start: 19960101, end: 20020419

REACTIONS (1)
  - BREAST CANCER FEMALE [None]
